FAERS Safety Report 8855708 (Version 1)
Quarter: 2012Q4

REPORT INFORMATION
  Report Type: 
  Country: US (occurrence: US)
  Receive Date: 20121023
  Receipt Date: 20121023
  Transmission Date: 20130627
  Serious: No
  Sender: FDA-Public Use
  Company Number: US-AMGEN-USASP2012059159

PATIENT
  Sex: Male
  Weight: 108.84 kg

DRUGS (8)
  1. ENBREL [Suspect]
     Indication: PRODUCT USED FOR UNKNOWN INDICATION
     Dosage: 50 mg, qwk
     Route: 058
  2. LISINOPRIL [Concomitant]
     Dosage: 10 mg, UNK
  3. LYRICA [Concomitant]
     Dosage: 100 mg, UNK
  4. CELEBREX [Concomitant]
     Dosage: 200 mg, UNK
  5. NIACIN [Concomitant]
     Dosage: 125 mg, UNK
  6. FOLIC ACID [Concomitant]
     Dosage: UNK
  7. VICODIN [Concomitant]
     Dosage: 5-500 mg, UNK
  8. PREDNISONE [Concomitant]
     Dosage: 10 mg, UNK

REACTIONS (1)
  - Drug ineffective [Unknown]
